FAERS Safety Report 9932596 (Version 2)
Quarter: 2014Q1

REPORT INFORMATION
  Report Type: Spontaneous
  Country: US (occurrence: US)
  Receive Date: 20140228
  Receipt Date: 20140228
  Transmission Date: 20141002
  Serious: No
  Sender: FDA-Public Use
  Company Number: US-ABBVIE-13P-163-1174225-00

PATIENT
  Sex: Male
  Weight: 88.53 kg

DRUGS (3)
  1. ANDROGEL [Suspect]
     Indication: BLOOD TESTOSTERONE DECREASED
     Route: 061
     Dates: start: 2012, end: 2013
  2. ANDROGEL [Suspect]
     Dates: start: 2013, end: 2013
  3. ANDROGEL [Suspect]
     Dates: start: 201311

REACTIONS (1)
  - Blood testosterone decreased [Unknown]
